FAERS Safety Report 18797798 (Version 1)
Quarter: 2021Q1

REPORT INFORMATION
  Report Type: Spontaneous
  Country: US (occurrence: US)
  Receive Date: 20210128
  Receipt Date: 20210128
  Transmission Date: 20210419
  Serious: Yes (Other)
  Sender: FDA-Public Use
  Company Number: US-TEVA-2021-US-1873919

PATIENT
  Sex: Female
  Weight: 67.19 kg

DRUGS (4)
  1. CALCIUM MAGNESIUM + D [Concomitant]
     Route: 065
  2. COQ?10 100 MG CAPSULE [Concomitant]
     Route: 065
  3. AUSTEDO [Suspect]
     Active Substance: DEUTETRABENAZINE
     Indication: TARDIVE DYSKINESIA
     Dosage: 18 MILLIGRAM DAILY;
     Route: 048
     Dates: start: 2019
  4. COMPLETE MULTIVITAMIN [Concomitant]
     Active Substance: VITAMINS
     Route: 065

REACTIONS (2)
  - Surgery [Unknown]
  - Haemorrhage [Unknown]
